FAERS Safety Report 9270921 (Version 1)
Quarter: 2013Q2

REPORT INFORMATION
  Report Type: Spontaneous
  Country: FR (occurrence: FR)
  Receive Date: 20130506
  Receipt Date: 20130506
  Transmission Date: 20140414
  Serious: Yes (Other)
  Sender: FDA-Public Use
  Company Number: FR-ROCHE-1220763

PATIENT
  Sex: Female

DRUGS (5)
  1. VESANOID [Suspect]
     Indication: ACUTE MYELOID LEUKAEMIA
     Route: 048
     Dates: start: 20100317
  2. VESANOID [Suspect]
     Dosage: DOSE REDUCED, CYCLES WERE SPACED TO THREE MONTHS INSTEAD OF 15 DAYS
     Route: 048
  3. NEXAVAR [Suspect]
     Indication: ACUTE MYELOID LEUKAEMIA
     Route: 048
     Dates: start: 201108
  4. ETOPOSIDE [Suspect]
     Indication: ACUTE MYELOID LEUKAEMIA
     Route: 042
     Dates: start: 201108
  5. DEPOCYTE [Concomitant]
     Indication: ACUTE MYELOID LEUKAEMIA
     Dosage: DISCONTINUED AFTER 2 MONTHS
     Route: 037

REACTIONS (2)
  - Obstructive airways disorder [Not Recovered/Not Resolved]
  - Dyspnoea [Not Recovered/Not Resolved]
